FAERS Safety Report 7957317-3 (Version None)
Quarter: 2011Q4

REPORT INFORMATION
  Report Type: 
  Country: None (occurrence: None)
  Receive Date: 20111205
  Receipt Date: 20111108
  Transmission Date: 20120403
  Serious: No
  Sender: FDA-Public Use
  Company Number: US-BAYER-2011-108884

PATIENT
  Age: 25 Year
  Sex: Female
  Weight: 95 kg

DRUGS (7)
  1. ABILIFY [Concomitant]
  2. ALEVE (CAPLET) [Suspect]
     Indication: HEADACHE
     Dosage: UNK
     Route: 048
     Dates: end: 20111108
  3. ZYPREXA [Concomitant]
  4. GEMFIBROZIL [Concomitant]
  5. NEURONTIN [Concomitant]
  6. FLEXERIL [Concomitant]
  7. VISTARIL [HYDROXYZINE HYDROCHLORIDE] [Concomitant]

REACTIONS (1)
  - NO ADVERSE EVENT [None]
